FAERS Safety Report 5312734-5 (Version None)
Quarter: 2007Q2

REPORT INFORMATION
  Report Type: 
  Country: None (occurrence: None)
  Receive Date: 20070430
  Receipt Date: 20070416
  Transmission Date: 20071010
  Serious: Yes (Other)
  Sender: FDA-Public Use
  Company Number: 400297

PATIENT
  Age: 1 Year
  Sex: Female

DRUGS (8)
  1. TAMIFLU [Suspect]
     Dosage: FORM: DRY SYRUP
     Route: 048
     Dates: start: 20050315, end: 20050315
  2. TAMIFLU [Suspect]
     Dosage: FORM: DRY SYRUP
     Route: 048
     Dates: start: 20050316, end: 20050316
  3. MEIACT [Concomitant]
     Dosage: FORM: FINE GRANULE
     Route: 048
     Dates: start: 20050315, end: 20050321
  4. COCARL [Concomitant]
     Route: 048
     Dates: start: 20050316, end: 20050317
  5. MUCODYNE [Concomitant]
     Route: 048
     Dates: start: 20050316, end: 20050321
  6. ENTERONON [Concomitant]
     Route: 065
  7. ASVERIN [Concomitant]
     Route: 048
     Dates: start: 20050316, end: 20050321
  8. DIAPP [Concomitant]
     Route: 054
     Dates: start: 20050316, end: 20050317

REACTIONS (1)
  - AGITATION [None]
